FAERS Safety Report 4968647-1 (Version None)
Quarter: 2006Q2

REPORT INFORMATION
  Report Type: 
  Country: None (occurrence: None)
  Receive Date: 20060411
  Receipt Date: 20060406
  Transmission Date: 20061013
  Serious: Yes (Hospitalization)
  Sender: FDA-Public Use
  Company Number: PHBS2006FR05145

PATIENT
  Age: 28 Year
  Sex: Female

DRUGS (1)
  1. METHYLPHENIDATE HCL [Suspect]
     Indication: NARCOLEPSY
     Dosage: 52 MG, QD
     Route: 048

REACTIONS (4)
  - ABNORMAL BEHAVIOUR [None]
  - ELEVATED MOOD [None]
  - HYPOMANIA [None]
  - PSYCHOMOTOR HYPERACTIVITY [None]
